FAERS Safety Report 8122680-X (Version None)
Quarter: 2012Q1

REPORT INFORMATION
  Report Type: 
  Country: None (occurrence: None)
  Receive Date: 20120208
  Receipt Date: 20120131
  Transmission Date: 20120608
  Serious: Yes (Other)
  Sender: FDA-Public Use
  Company Number: US-BIOGENIDEC-2012BI003253

PATIENT
  Sex: Female

DRUGS (7)
  1. PREVACID [Concomitant]
  2. RECLAST [Concomitant]
  3. METHENAMINE TAB [Concomitant]
  4. SYNTHROID [Concomitant]
  5. IMIPRAMINE HCL [Concomitant]
  6. EFFEXOR [Concomitant]
  7. AVONEX [Suspect]
     Indication: MULTIPLE SCLEROSIS
     Route: 030
     Dates: start: 19960701

REACTIONS (1)
  - MALIGNANT MELANOMA IN SITU [None]
